FAERS Safety Report 7492673-4 (Version None)
Quarter: 2011Q2

REPORT INFORMATION
  Report Type: 
  Country: None (occurrence: None)
  Receive Date: 20110519
  Receipt Date: 20110511
  Transmission Date: 20111010
  Serious: Yes (Other)
  Sender: FDA-Public Use
  Company Number: FR-B.I. PHARMACEUTICALS,INC./RIDGEFIELD-2011-FF-00475FF

PATIENT
  Sex: Male

DRUGS (12)
  1. ZOLPIDEM [Concomitant]
     Dosage: 10 MG
     Route: 048
  2. GAVISCON [Concomitant]
     Route: 048
  3. IRBESARTAN [Suspect]
     Indication: HYPERTENSION
     Dosage: 75 MG
     Route: 048
     Dates: start: 20110401, end: 20110401
  4. CALCIUM CARBONATE [Concomitant]
     Route: 048
  5. ACETAMINOPHEN [Concomitant]
     Dosage: 3000 MG
     Route: 048
     Dates: start: 20110401
  6. LAROSCORBINE [Concomitant]
     Dosage: 1 G
     Route: 048
  7. LOVENOX [Concomitant]
     Route: 058
     Dates: start: 20110323
  8. COLCHICINE [Concomitant]
     Indication: GOUT
     Dates: start: 20110331
  9. INDAPAMIDE [Concomitant]
     Indication: HYPERTENSION
     Dosage: 2.5 MG
     Route: 048
     Dates: start: 20101201, end: 20110331
  10. TRANSIPEG [Concomitant]
     Route: 048
  11. TAMSULOSIN HCL [Suspect]
     Dosage: 0.4 MG
     Route: 048
     Dates: start: 20110322
  12. MEMANTINE HYDROCHLORIDE [Concomitant]
     Indication: DEMENTIA ALZHEIMER'S TYPE
     Dosage: 20 MG
     Route: 048
     Dates: start: 20110324

REACTIONS (3)
  - HYPOTENSION [None]
  - LOSS OF CONSCIOUSNESS [None]
  - VERTIGO [None]
